FAERS Safety Report 6309505-X (Version None)
Quarter: 2009Q3

REPORT INFORMATION
  Report Type: 
  Country: None (occurrence: None)
  Receive Date: 20090814
  Receipt Date: 20090810
  Transmission Date: 20100115
  Serious: No
  Sender: FDA-Public Use
  Company Number: US-B.I. PHARMACEUTICALS,INC./RIDGEFIELD-2009-BP-09492BP

PATIENT
  Age: 65 Year
  Sex: Female

DRUGS (1)
  1. SPIRIVA [Suspect]
     Indication: EMPHYSEMA
     Dosage: 18 MCG
     Route: 055
     Dates: start: 20080901

REACTIONS (9)
  - ABDOMINAL PAIN UPPER [None]
  - APHONIA [None]
  - CONSTIPATION [None]
  - DRY MOUTH [None]
  - DRY THROAT [None]
  - DYSPHONIA [None]
  - FATIGUE [None]
  - MYALGIA [None]
  - NAUSEA [None]
